FAERS Safety Report 8463705-1 (Version None)
Quarter: 2012Q2

REPORT INFORMATION
  Report Type: 
  Country: None (occurrence: None)
  Receive Date: 20120625
  Receipt Date: 20120615
  Transmission Date: 20120825
  Serious: Yes (Other)
  Sender: FDA-Public Use
  Company Number: US-ABBOTT-12P-163-0946749-00

PATIENT
  Sex: Female
  Weight: 44.038 kg

DRUGS (10)
  1. HUMIRA [Suspect]
     Dates: end: 20110101
  2. ROBAXIN [Concomitant]
     Indication: GASTRIC DISORDER
  3. FOSAMAX [Concomitant]
     Indication: OSTEOARTHRITIS
  4. HUMIRA [Suspect]
     Indication: RHEUMATOID ARTHRITIS
  5. HUMIRA [Suspect]
     Dates: start: 20110101
  6. CARBO LEVO [Concomitant]
     Indication: MUSCLE SPASMS
  7. CARBO LEVO [Concomitant]
  8. CARBO LEVO [Concomitant]
  9. TRAZODONE HCL [Concomitant]
     Indication: SLEEP DISORDER THERAPY
  10. MOBIC [Concomitant]
     Indication: RHEUMATOID ARTHRITIS

REACTIONS (4)
  - CYST [None]
  - ARTHRITIS [None]
  - ARTHRALGIA [None]
  - OEDEMA PERIPHERAL [None]
